FAERS Safety Report 7705386-8 (Version None)
Quarter: 2011Q3

REPORT INFORMATION
  Report Type: 
  Country: None (occurrence: None)
  Receive Date: 20110818
  Receipt Date: 20110805
  Transmission Date: 20111222
  Serious: Yes (Hospitalization)
  Sender: FDA-Public Use
  Company Number: AUR-APL-2011-01746

PATIENT
  Age: 58 Year
  Sex: Female
  Weight: 65 kg

DRUGS (7)
  1. FLUOXETINE HCL [Concomitant]
  2. FLUTICASONE PROPIONATE [Concomitant]
  3. CANDESARTAN CILEXETIL [Concomitant]
  4. FLUCONAZOLE [Suspect]
     Indication: CANDIDIASIS
     Dosage: 150 GM
     Dates: start: 20110111
  5. CO-CODAMOL (PANADEINE CO) [Concomitant]
  6. CARBAMAZEPINE [Concomitant]
  7. ALBUTEROL SULFATE [Concomitant]

REACTIONS (8)
  - BLOOD ALKALINE PHOSPHATASE INCREASED [None]
  - URINE COLOUR ABNORMAL [None]
  - HEPATOMEGALY [None]
  - ASPARTATE AMINOTRANSFERASE INCREASED [None]
  - PRURITUS [None]
  - FAECES PALE [None]
  - JAUNDICE [None]
  - ALANINE AMINOTRANSFERASE INCREASED [None]
